FAERS Safety Report 4843599-3 (Version None)
Quarter: 2005Q4

REPORT INFORMATION
  Report Type: 
  Country: None (occurrence: None)
  Receive Date: 20051202
  Receipt Date: 20051102
  Transmission Date: 20060501
  Serious: Yes (Hospitalization)
  Sender: FDA-Public Use
  Company Number: FR-BRISTOL-MYERS SQUIBB COMPANY-13167739

PATIENT
  Age: 39 Year
  Sex: Female

DRUGS (8)
  1. QUESTRAN [Suspect]
     Route: 048
     Dates: start: 20050907, end: 20051008
  2. ATHYMIL [Suspect]
     Dates: start: 20050930, end: 20051008
  3. LEXOMIL [Suspect]
     Dates: start: 20050915, end: 20051008
  4. DEBRIDAT [Concomitant]
     Dates: start: 20050907
  5. SUCRALFATE [Concomitant]
     Dates: start: 20050907
  6. CREON [Concomitant]
  7. TOPALGIC [Concomitant]
     Dates: start: 20050830
  8. HEPT-A-MYL [Concomitant]
     Dates: start: 20050830

REACTIONS (1)
  - NEUTROPENIA [None]
